FAERS Safety Report 13177965 (Version 1)
Quarter: 2017Q1

REPORT INFORMATION
  Report Type: Report from Study
  Country: US (occurrence: US)
  Receive Date: 20170202
  Receipt Date: 20170202
  Transmission Date: 20170428
  Serious: Yes (Hospitalization)
  Sender: FDA-Public Use
  Company Number: US-ROCHE-1884593

PATIENT
  Sex: Male

DRUGS (2)
  1. LUCENTIS [Suspect]
     Active Substance: RANIBIZUMAB
     Indication: MACULAR OEDEMA
  2. LUCENTIS [Suspect]
     Active Substance: RANIBIZUMAB
     Indication: RETINAL VEIN OCCLUSION
     Dosage: ONGOING- UNKNOWN. LEFT EYE
     Route: 050

REACTIONS (4)
  - Cough [Not Recovered/Not Resolved]
  - Pharyngeal oedema [Unknown]
  - Dysphonia [Not Recovered/Not Resolved]
  - Hernia [Unknown]
